FAERS Safety Report 23133904 (Version 3)
Quarter: 2023Q4

REPORT INFORMATION
  Report Type: Report from Study
  Country: FR (occurrence: FR)
  Receive Date: 20231101
  Receipt Date: 20231128
  Transmission Date: 20240110
  Serious: No
  Sender: FDA-Public Use
  Company Number: FR-TAKEDA-2023TUS105551

PATIENT
  Age: 91 Year
  Sex: Male

DRUGS (8)
  1. TEDUGLUTIDE [Suspect]
     Active Substance: TEDUGLUTIDE
     Indication: Short-bowel syndrome
     Dosage: 3.8 MILLIGRAM, QD
     Route: 042
     Dates: start: 20160614, end: 20170522
  2. TEDUGLUTIDE [Suspect]
     Active Substance: TEDUGLUTIDE
     Indication: Short-bowel syndrome
     Dosage: 3.8 MILLIGRAM, QD
     Route: 042
     Dates: start: 20160614, end: 20170522
  3. TEDUGLUTIDE [Suspect]
     Active Substance: TEDUGLUTIDE
     Indication: Short-bowel syndrome
     Dosage: 3.8 MILLIGRAM, QD
     Route: 042
     Dates: start: 20160614, end: 20170522
  4. TEDUGLUTIDE [Suspect]
     Active Substance: TEDUGLUTIDE
     Indication: Short-bowel syndrome
     Dosage: 3.8 MILLIGRAM, QD
     Route: 042
     Dates: start: 20160614, end: 20170522
  5. ESOMEPRAZOLE [Concomitant]
     Active Substance: ESOMEPRAZOLE
     Indication: Hyperchlorhydria
     Dosage: 40 MILLIGRAM, QD
     Route: 048
     Dates: start: 2022
  6. LEVOTHYROXINE [Concomitant]
     Active Substance: LEVOTHYROXINE
     Indication: Hypothyroidism
     Dosage: 100 MICROGRAM, QD
     Route: 048
     Dates: start: 2022
  7. VITAMIN C [Concomitant]
     Active Substance: ASCORBIC ACID
     Dosage: 1000 MILLIGRAM, QD
     Route: 048
     Dates: start: 2022
  8. RIVAROXABAN [Concomitant]
     Active Substance: RIVAROXABAN
     Indication: Ischaemic cardiomyopathy
     Dosage: 1 DOSAGE FORM
     Route: 048
     Dates: start: 202012

REACTIONS (2)
  - Steatorrhoea [Not Recovered/Not Resolved]
  - Hypomagnesaemia [Not Recovered/Not Resolved]

NARRATIVE: CASE EVENT DATE: 20230516
